FAERS Safety Report 8298063-9 (Version None)
Quarter: 2012Q2

REPORT INFORMATION
  Report Type: 
  Country: None (occurrence: None)
  Receive Date: 20120419
  Receipt Date: 20120323
  Transmission Date: 20120825
  Serious: Yes (Other)
  Sender: FDA-Public Use
  Company Number: US-BAXTER-2012BAX000960

PATIENT

DRUGS (13)
  1. DOXORUBICIN HCL [Suspect]
     Indication: BURKITT'S LYMPHOMA
  2. DEXAMETHASONE [Suspect]
  3. RITUXIMAB [Suspect]
  4. VINCRISTINE [Suspect]
  5. DEXAMETHASONE [Suspect]
     Indication: BURKITT'S LYMPHOMA
  6. METHOTREXATE [Suspect]
     Indication: BURKITT'S LYMPHOMA
     Route: 037
  7. DOXORUBICIN HCL [Suspect]
  8. CYCLOPHOSPHAMIDE [Suspect]
     Indication: BURKITT'S LYMPHOMA
  9. CYTARABINE [Suspect]
     Indication: BURKITT'S LYMPHOMA
     Route: 037
  10. VINCRISTINE [Suspect]
     Indication: BURKITT'S LYMPHOMA
  11. METHOTREXATE [Suspect]
  12. CYCLOPHOSPHAMIDE [Suspect]
  13. CYTARABINE [Suspect]

REACTIONS (1)
  - MYELOID LEUKAEMIA [None]
